FAERS Safety Report 14920835 (Version 2)
Quarter: 2019Q2

REPORT INFORMATION
  Report Type: Spontaneous
  Country: PT (occurrence: PT)
  Receive Date: 20180521
  Receipt Date: 20190425
  Transmission Date: 20190711
  Serious: Yes (Hospitalization, Other)
  Sender: FDA-Public Use
  Company Number: PT-MYLANLABS-2018M1032531

PATIENT
  Age: 18 Year
  Sex: Male

DRUGS (1)
  1. MESALAZINE [Suspect]
     Active Substance: MESALAMINE
     Indication: CROHN^S DISEASE
     Dosage: UNK

REACTIONS (9)
  - Dyspnoea exertional [Recovered/Resolved]
  - Off label use [Unknown]
  - Hypersensitivity [Recovered/Resolved]
  - Pleural effusion [Recovered/Resolved]
  - Troponin increased [Recovered/Resolved]
  - Systolic dysfunction [Recovered/Resolved]
  - Myocarditis [Recovered/Resolved]
  - Electrocardiogram ST segment elevation [Recovered/Resolved]
  - Chest pain [Recovered/Resolved]
